FAERS Safety Report 13463874 (Version 1)
Quarter: 2017Q2

REPORT INFORMATION
  Report Type: Spontaneous
  Country: US (occurrence: US)
  Receive Date: 20170420
  Receipt Date: 20170420
  Transmission Date: 20170830
  Serious: Yes (Other)
  Sender: FDA-Public Use
  Company Number: US-ROCHE-691770

PATIENT
  Age: 16 Year
  Sex: Female
  Weight: 59 kg

DRUGS (4)
  1. ACCUTANE [Suspect]
     Active Substance: ISOTRETINOIN
     Indication: ACNE
     Route: 065
     Dates: start: 20001218, end: 200105
  2. MINOCYCLINE [Concomitant]
     Active Substance: MINOCYCLINE\MINOCYCLINE HYDROCHLORIDE
     Indication: ACNE
     Route: 065
  3. CLINDAMYCIN. [Concomitant]
     Active Substance: CLINDAMYCIN
     Indication: ACNE
     Route: 065
  4. BACTRIM [Concomitant]
     Active Substance: SULFAMETHOXAZOLE\TRIMETHOPRIM
     Route: 065

REACTIONS (11)
  - Vision blurred [Recovered/Resolved]
  - Chapped lips [Recovering/Resolving]
  - Headache [Unknown]
  - Dry skin [Recovered/Resolved]
  - Dry eye [Unknown]
  - Mood altered [Recovering/Resolving]
  - Eye irritation [Recovered/Resolved]
  - Dermatitis [Recovered/Resolved]
  - Large intestinal ulcer [Unknown]
  - Depression [Unknown]
  - Inflammatory bowel disease [Unknown]

NARRATIVE: CASE EVENT DATE: 20010117
